FAERS Safety Report 6505467-0 (Version None)
Quarter: 2009Q4

REPORT INFORMATION
  Report Type: 
  Country: None (occurrence: None)
  Receive Date: 20091218
  Receipt Date: 20091209
  Transmission Date: 20100525
  Serious: Yes (Other)
  Sender: FDA-Public Use
  Company Number: US-ALEXION-A200900304

PATIENT
  Age: 69 Year
  Sex: Female

DRUGS (2)
  1. SOLIRIS [Suspect]
     Indication: PAROXYSMAL NOCTURNAL HAEMOGLOBINURIA
     Dosage: 600 MG, WEEKLY
     Route: 042
     Dates: start: 20081017, end: 20081107
  2. SOLIRIS [Suspect]
     Dosage: 900 MG, Q 2 WEEKS
     Dates: start: 20081114, end: 20090415

REACTIONS (3)
  - DISEASE COMPLICATION [None]
  - MYELOID LEUKAEMIA [None]
  - PLATELET COUNT DECREASED [None]
